FAERS Safety Report 6265790-4 (Version None)
Quarter: 2009Q3

REPORT INFORMATION
  Report Type: 
  Country: None (occurrence: None)
  Receive Date: 20090713
  Receipt Date: 20090706
  Transmission Date: 20100115
  Serious: Yes (Congenital Anomaly)
  Sender: FDA-Public Use
  Company Number: A0680959A

PATIENT
  Sex: Male
  Weight: 3.9 kg

DRUGS (4)
  1. PAXIL [Suspect]
     Indication: DEPRESSION
     Dosage: 30MG PER DAY
     Dates: start: 20021101, end: 20030701
  2. VITAMIN TAB [Concomitant]
  3. PHENERGAN [Concomitant]
     Dates: start: 20021101
  4. TYLENOL [Concomitant]

REACTIONS (3)
  - CARDIAC MURMUR [None]
  - CONGENITAL ANOMALY [None]
  - DRUG EXPOSURE DURING PREGNANCY [None]
